FAERS Safety Report 6526392-5 (Version None)
Quarter: 2009Q4

REPORT INFORMATION
  Report Type: 
  Country: None (occurrence: None)
  Receive Date: 20091228
  Receipt Date: 20091203
  Transmission Date: 20100525
  Serious: Yes (Hospitalization)
  Sender: FDA-Public Use
  Company Number: PI-04403

PATIENT
  Age: 44 Year
  Sex: Male

DRUGS (1)
  1. CHLORAPREP WITH TINT [Suspect]
     Indication: PREOPERATIVE CARE
     Dosage: 26 ML, ONCE, TOPICAL
     Route: 061
     Dates: start: 20090703

REACTIONS (3)
  - BURNS FIRST DEGREE [None]
  - BURNS SECOND DEGREE [None]
  - INJURY [None]
